FAERS Safety Report 6101949-4 (Version None)
Quarter: 2009Q1

REPORT INFORMATION
  Report Type: 
  Country: None (occurrence: None)
  Receive Date: 20090303
  Receipt Date: 20090303
  Transmission Date: 20090719
  Serious: Yes (Other)
  Sender: FDA-Public Use
  Company Number: None

PATIENT
  Sex: Female
  Weight: 67.1324 kg

DRUGS (1)
  1. COMPOUND BENZOIN TINCTURE3M -?- [Suspect]
     Indication: SKIN NEOPLASM EXCISION
     Dates: start: 20090216, end: 20090219

REACTIONS (6)
  - BLISTER [None]
  - BURNING SENSATION [None]
  - DERMATITIS CONTACT [None]
  - PROCEDURAL SITE REACTION [None]
  - PRURITUS [None]
  - THERMAL BURN [None]
